FAERS Safety Report 7150371-0 (Version None)
Quarter: 2010Q4

REPORT INFORMATION
  Report Type: 
  Country: None (occurrence: None)
  Receive Date: 20101123
  Receipt Date: 20101104
  Transmission Date: 20110411
  Serious: Yes (Hospitalization)
  Sender: FDA-Public Use
  Company Number: PI-04976-001

PATIENT
  Age: 38 Year
  Sex: Female

DRUGS (1)
  1. CHLORAPREP WITH TINT [Suspect]
     Indication: PREOPERATIVE CARE
     Dosage: 26ML, ONCE; TOPICAL
     Route: 061
     Dates: start: 20100803

REACTIONS (6)
  - NO THERAPEUTIC RESPONSE [None]
  - PRURITUS [None]
  - SCAR [None]
  - SECRETION DISCHARGE [None]
  - SKIN REACTION [None]
  - STAPHYLOCOCCAL INFECTION [None]
